FAERS Safety Report 4921548-7 (Version None)
Quarter: 2006Q1

REPORT INFORMATION
  Report Type: 
  Country: None (occurrence: None)
  Receive Date: 20060221
  Receipt Date: 20060209
  Transmission Date: 20060701
  Serious: Yes (Death, Other)
  Sender: FDA-Public Use
  Company Number: 2006019909

PATIENT
  Age: 20 Month
  Sex: Female
  Weight: 13.6079 kg

DRUGS (1)
  1. UNISOM [Suspect]
     Dosage: MAYBE 9 SLEEP GELS ONCE, ORAL
     Route: 048
     Dates: start: 20060101, end: 20060101

REACTIONS (1)
  - OVERDOSE [None]
